FAERS Safety Report 4977802-6 (Version None)
Quarter: 2006Q1

REPORT INFORMATION
  Report Type: 
  Country: None (occurrence: None)
  Receive Date: 20060215
  Receipt Date: 20050812
  Transmission Date: 20060701
  Serious: Yes (Other)
  Sender: FDA-Public Use
  Company Number: MC200500719

PATIENT
  Age: 73 Year
  Sex: Male
  Weight: 87.5 kg

DRUGS (10)
  1. ANGIOMAX [Suspect]
     Indication: PERCUTANEOUS CORONARY INTERVENTION
     Dosage: 0.75 MG/KG, BOLUS, IV BOLUS
     Route: 040
     Dates: start: 20050803, end: 20050803
  2. ANGIOMAX [Suspect]
     Dosage: 1.75 MG/KG, HR, INTRAVENOUS
     Route: 042
     Dates: start: 20050803
  3. PLAVIX [Concomitant]
  4. ASPIRIN [Concomitant]
  5. VERSED [Concomitant]
  6. FENTANYL [Concomitant]
  7. LIDOCAINE [Concomitant]
  8. NITROGLYCERIN ^DUMEX^ (GLYCERYL TRINITRATE) [Concomitant]
  9. NICARDIPINE (NICARDIPINE) [Concomitant]
  10. ADENOSINE [Concomitant]

REACTIONS (1)
  - THROMBOSIS [None]
